FAERS Safety Report 9264161 (Version 2)
Quarter: 2013Q2

REPORT INFORMATION
  Report Type: Spontaneous
  Country: JP (occurrence: JP)
  Receive Date: 20130430
  Receipt Date: 20130513
  Transmission Date: 20140414
  Serious: Yes (Hospitalization)
  Sender: FDA-Public Use
  Company Number: JP-B.I. PHARMACEUTICALS,INC./RIDGEFIELD-2013-BI-10951NB

PATIENT
  Age: 80 Year
  Sex: Female

DRUGS (6)
  1. PRAZAXA [Suspect]
     Dosage: 220 MG
     Route: 048
     Dates: start: 20120710, end: 20130320
  2. CELECOX [Concomitant]
     Dosage: 100 MG
  3. HERBESSER R [Concomitant]
     Dosage: 100 MG
     Route: 065
  4. GASTER D [Concomitant]
     Dosage: 20 MG
     Route: 065
  5. SINGULAIR [Concomitant]
     Dosage: 10 MG
     Route: 065
  6. ADOAIR [Concomitant]
     Route: 065

REACTIONS (3)
  - Large intestinal haemorrhage [Not Recovered/Not Resolved]
  - Asthma [Unknown]
  - Enterocolitis [Unknown]
